FAERS Safety Report 4956375-8 (Version None)
Quarter: 2006Q1

REPORT INFORMATION
  Report Type: 
  Country: None (occurrence: None)
  Receive Date: 20060323
  Receipt Date: 20060310
  Transmission Date: 20060701
  Serious: Yes (Hospitalization)
  Sender: FDA-Public Use
  Company Number: 2006035539

PATIENT
  Age: 73 Year
  Sex: Female

DRUGS (9)
  1. ALDACTONE [Suspect]
     Indication: ILL-DEFINED DISORDER
     Dosage: 25 MG), ORAL
     Route: 048
     Dates: start: 20000101, end: 20051228
  2. AMITRIPTYLINE HYDROCHLORIDE [Suspect]
     Indication: ILL-DEFINED DISORDER
     Dosage: (25 MG), ORAL
     Route: 048
     Dates: start: 20051201, end: 20051228
  3. PREVISCAN (FLUINDIONE) [Concomitant]
  4. TENORMIN [Concomitant]
  5. XANAX [Concomitant]
  6. STILNOX (ZOLPIDEM) [Concomitant]
  7. LEVOTHYROXINE SODIUM [Concomitant]
  8. RISEDRONIC ACID (RISEDRONIC ACID) [Concomitant]
  9. PRAVASTATIN [Concomitant]

REACTIONS (13)
  - ABNORMAL BEHAVIOUR [None]
  - BLOOD GLUCOSE INCREASED [None]
  - BLOOD POTASSIUM INCREASED [None]
  - BLOOD PRESSURE SYSTOLIC INCREASED [None]
  - CEREBRAL DISORDER [None]
  - CONFUSIONAL STATE [None]
  - CREATININE RENAL CLEARANCE DECREASED [None]
  - DEMENTIA ALZHEIMER'S TYPE [None]
  - EPILEPSY [None]
  - HYPONATRAEMIA [None]
  - MALAISE [None]
  - MENINGIOMA [None]
  - MUTISM [None]
